FAERS Safety Report 19146534 (Version 1)
Quarter: 2021Q2

REPORT INFORMATION
  Report Type: Spontaneous
  Country: CA (occurrence: CA)
  Receive Date: 20210416
  Receipt Date: 20210416
  Transmission Date: 20210717
  Serious: Yes (Hospitalization)
  Sender: FDA-Public Use
  Company Number: CA-PFIZER INC-2021390338

PATIENT
  Age: 49 Year
  Sex: Male

DRUGS (4)
  1. VINCRISTINE SULFATE. [Suspect]
     Active Substance: VINCRISTINE SULFATE
     Dosage: 2 MG, CYCLIC
  2. PEGASPARGASE [Suspect]
     Active Substance: PEGASPARGASE
     Dosage: 3750 UNITS, CYCLIC
     Route: 065
  3. DOXORUBICIN HCL LIPOSOME [Suspect]
     Active Substance: DOXORUBICIN HYDROCHLORIDE
     Dosage: 57 MG, CYCLIC
     Route: 065
  4. MERCAPTOPURINE. [Suspect]
     Active Substance: MERCAPTOPURINE
     Indication: B-CELL LYMPHOMA RECURRENT
     Dosage: 100 MG, CYCLIC
     Route: 065

REACTIONS (1)
  - Febrile neutropenia [Not Recovered/Not Resolved]
